FAERS Safety Report 9507825 (Version 1)
Quarter: 2013Q3

REPORT INFORMATION
  Report Type: Spontaneous
  Country: US (occurrence: US)
  Receive Date: 20130909
  Receipt Date: 20130909
  Transmission Date: 20140515
  Serious: Yes (Other)
  Sender: FDA-Public Use
  Company Number: US-PFIZER INC-2013258583

PATIENT
  Age: 52 Year
  Sex: Female
  Weight: 80.7 kg

DRUGS (3)
  1. ZOLOFT [Suspect]
     Indication: DEPRESSION
     Dosage: 200 MG, 1X/DAY
     Route: 048
  2. NEURONTIN [Concomitant]
     Dosage: UNK
  3. VISTARIL [Concomitant]
     Dosage: UNK

REACTIONS (1)
  - Multiple sclerosis [Unknown]
